FAERS Safety Report 9016078 (Version 1)
Quarter: 2013Q1

REPORT INFORMATION
  Report Type: Spontaneous
  Country: BR (occurrence: BR)
  Receive Date: 20130116
  Receipt Date: 20130116
  Transmission Date: 20140127
  Serious: Yes (Other)
  Sender: FDA-Public Use
  Company Number: PHHY2013BR003754

PATIENT
  Sex: Female

DRUGS (3)
  1. VALPROIC ACID [Suspect]
     Indication: CONVULSION
     Dosage: UNK
  2. VALPROIC ACID [Suspect]
     Dosage: 30 MG/KG,/DAY
  3. VALPROIC ACID [Suspect]
     Dosage: DOSE TAPEREDUNK

REACTIONS (5)
  - Poisoning [Unknown]
  - Hypertonia [Unknown]
  - Decreased activity [Unknown]
  - Somnolence [Unknown]
  - Drug level increased [Unknown]
